FAERS Safety Report 9681515 (Version 1)
Quarter: 2013Q4

REPORT INFORMATION
  Report Type: Spontaneous
  Country: DE (occurrence: None)
  Receive Date: 20131107
  Receipt Date: 20131107
  Transmission Date: 20140711
  Serious: Yes (Hospitalization, Other)
  Sender: FDA-Public Use
  Company Number: 1310-1388

PATIENT
  Sex: Male

DRUGS (1)
  1. EYLEA (AFLIBERCEPT) ( INJECTION) (AFLIBERCEPT) [Suspect]
     Indication: AGE-RELATED MACULAR DEGENERATION
     Dates: start: 201306

REACTIONS (1)
  - Urinary tract infection [None]
